FAERS Safety Report 5704331-4 (Version None)
Quarter: 2008Q2

REPORT INFORMATION
  Report Type: 
  Country: None (occurrence: None)
  Receive Date: 20080411
  Receipt Date: 20080411
  Transmission Date: 20081010
  Serious: Yes (Life-Threatening)
  Sender: FDA-Public Use
  Company Number: None

PATIENT
  Age: 64 Year
  Sex: Male
  Weight: 117.9352 kg

DRUGS (2)
  1. CARDURA [Suspect]
     Indication: HYPERTENSION
     Dosage: 4 MG CUT TO 2MG 1 AT NIGHT
  2. CARDURA [Suspect]
     Indication: ILL-DEFINED DISORDER
     Dosage: 4 MG CUT TO 2MG 1 AT NIGHT

REACTIONS (7)
  - ABDOMINAL PAIN UPPER [None]
  - BLOOD PRESSURE DECREASED [None]
  - EYE IRRITATION [None]
  - HAEMORRHAGE [None]
  - ILL-DEFINED DISORDER [None]
  - LETHARGY [None]
  - SKIN ULCER [None]
